FAERS Safety Report 5529724-X (Version None)
Quarter: 2007Q4

REPORT INFORMATION
  Report Type: 
  Country: None (occurrence: None)
  Receive Date: 20071129
  Receipt Date: 20061211
  Transmission Date: 20080405
  Serious: No
  Sender: FDA-Public Use
  Company Number: US-ABBOTT-06P-163-0353188-00

PATIENT
  Sex: Male
  Weight: 102.2 kg

DRUGS (2)
  1. MERIDIA [Suspect]
     Indication: WEIGHT CONTROL
     Route: 048
     Dates: start: 20060501, end: 20061208
  2. ZETIA [Concomitant]
     Indication: BLOOD CHOLESTEROL INCREASED
     Route: 048
     Dates: start: 20060501, end: 20060501

REACTIONS (5)
  - CHROMATURIA [None]
  - GROIN PAIN [None]
  - HAEMATOCHEZIA [None]
  - PROSTATIC PAIN [None]
  - RENAL PAIN [None]
